FAERS Safety Report 5737782-2 (Version None)
Quarter: 2008Q2

REPORT INFORMATION
  Report Type: 
  Country: None (occurrence: None)
  Receive Date: 20080512
  Receipt Date: 20080512
  Transmission Date: 20081010
  Serious: Yes (Death, Life-Threatening, Hospitalization, Disabling)
  Sender: FDA-Public Use
  Company Number: None

PATIENT
  Age: 93 Year
  Sex: Female
  Weight: 41.7309 kg

DRUGS (2)
  1. RISPERDAL [Suspect]
     Indication: ANXIETY
     Dosage: 0.25MG PO BID
     Dates: start: 20060807, end: 20060902
  2. RISPERDAL [Suspect]
     Indication: COLITIS
     Dosage: 0.25MG PO BID
     Dates: start: 20060807, end: 20060902

REACTIONS (13)
  - ANXIETY [None]
  - APHASIA [None]
  - ASTHENIA [None]
  - COLITIS [None]
  - COMMUNICATION DISORDER [None]
  - CONFUSIONAL STATE [None]
  - DEPRESSED MOOD [None]
  - DYSPHAGIA [None]
  - ILL-DEFINED DISORDER [None]
  - LETHARGY [None]
  - MASTICATION DISORDER [None]
  - PAIN [None]
  - SPEECH DISORDER [None]
